FAERS Safety Report 24725534 (Version 1)
Quarter: 2024Q4

REPORT INFORMATION
  Report Type: Spontaneous
  Country: GB (occurrence: GB)
  Receive Date: 20241212
  Receipt Date: 20241212
  Transmission Date: 20250114
  Serious: Yes (Hospitalization)
  Sender: RANBAXY
  Company Number: GB-MHRA-WEBRADR-202411270937117960-BYVQD

PATIENT
  Age: 86 Year

DRUGS (1)
  1. CODEINE [Suspect]
     Active Substance: CODEINE
     Indication: Pain
     Dosage: 15 MILLIGRAM, UNK
     Route: 065

REACTIONS (1)
  - Fall [Recovering/Resolving]
